FAERS Safety Report 15541121 (Version 1)
Quarter: 2018Q4

REPORT INFORMATION
  Report Type: Spontaneous
  Country: JP (occurrence: JP)
  Receive Date: 20181023
  Receipt Date: 20181023
  Transmission Date: 20190205
  Serious: Yes (Hospitalization)
  Sender: FDA-Public Use
  Company Number: JP-TEVA-2018-JP-005627J

PATIENT
  Age: 81 Year
  Sex: Female
  Weight: 47 kg

DRUGS (8)
  1. EDIROL [Concomitant]
     Active Substance: ELDECALCITOL
     Route: 065
  2. FENOFIBRATE TABLET 80MG ^TAKEDA TEVA^ [Suspect]
     Active Substance: FENOFIBRATE
     Indication: BLOOD TRIGLYCERIDES INCREASED
     Dosage: 80 MILLIGRAM DAILY;
     Route: 048
     Dates: start: 20180830, end: 201809
  3. FENOFIBRATE TABLET 80MG  ^TAKEDA TEVA^ [Suspect]
     Active Substance: FENOFIBRATE
     Indication: BLOOD CHOLESTEROL INCREASED
  4. LORAZEPAM. [Concomitant]
     Active Substance: LORAZEPAM
     Route: 065
     Dates: start: 201805
  5. RALOXIFENE HYDROCHLORIDE. [Concomitant]
     Active Substance: RALOXIFENE HYDROCHLORIDE
     Route: 065
  6. RHEUMATREX [Concomitant]
     Active Substance: METHOTREXATE SODIUM
     Route: 065
  7. FOLIAMIN [Concomitant]
     Active Substance: FOLIC ACID
     Route: 065
     Dates: start: 201508
  8. LANSOPRAZOLE OD [Concomitant]
     Active Substance: LANSOPRAZOLE
     Route: 065

REACTIONS (2)
  - Erythema [Unknown]
  - Drug eruption [Recovered/Resolved]

NARRATIVE: CASE EVENT DATE: 20180904
